FAERS Safety Report 21336779 (Version 2)
Quarter: 2022Q4

REPORT INFORMATION
  Report Type: Spontaneous
  Country: JP (occurrence: JP)
  Receive Date: 20220915
  Receipt Date: 20221018
  Transmission Date: 20230113
  Serious: Yes (Other)
  Sender: FDA-Public Use
  Company Number: JP-BAYER-2022A127647

PATIENT
  Age: 53 Year
  Sex: Female

DRUGS (5)
  1. MIRENA [Suspect]
     Active Substance: LEVONORGESTREL
     Indication: Dysmenorrhoea
     Dosage: 20?G/DAY
     Route: 015
     Dates: start: 20180706
  2. ESTRADIOL [Concomitant]
     Active Substance: ESTRADIOL
     Indication: Menopausal symptoms
     Dosage: 0.5 MG, QD
     Dates: start: 20200514, end: 20200806
  3. ESTRADIOL [Concomitant]
     Active Substance: ESTRADIOL
     Indication: Menopausal symptoms
     Dosage: DAILY DOSE 2 PUSH
     Dates: start: 20200806, end: 202209
  4. OXICONAZOLE NITRATE [Concomitant]
     Active Substance: OXICONAZOLE NITRATE
     Indication: Vulvovaginal candidiasis
     Dosage: DAILY DOSE 600 MG
     Route: 067
     Dates: start: 20220916, end: 20220916
  5. DIPHENHYDRAMINE [Concomitant]
     Active Substance: DIPHENHYDRAMINE
     Indication: Vulvovaginal candidiasis
     Dosage: UNK
     Dates: start: 20220916, end: 20220916

REACTIONS (1)
  - Breast cancer female [Unknown]
